FAERS Safety Report 10946098 (Version 2)
Quarter: 2015Q1

REPORT INFORMATION
  Report Type: Spontaneous
  Country: US (occurrence: US)
  Receive Date: 20150323
  Receipt Date: 20150325
  Transmission Date: 20150721
  Serious: Yes (Other)
  Sender: FDA-Public Use
  Company Number: US-BAYER-2015-055044

PATIENT
  Sex: Female

DRUGS (1)
  1. YAZ [Suspect]
     Active Substance: DROSPIRENONE\ETHINYL ESTRADIOL
     Dosage: UNK
     Dates: start: 2006, end: 2008

REACTIONS (7)
  - Gallbladder disorder [None]
  - Anxiety [None]
  - General physical health deterioration [None]
  - Injury [None]
  - Pulmonary embolism [None]
  - Pain [None]
  - Emotional distress [None]
